FAERS Safety Report 17188474 (Version 1)
Quarter: 2019Q4

REPORT INFORMATION
  Report Type: Spontaneous
  Country: US (occurrence: US)
  Receive Date: 20191222
  Receipt Date: 20191222
  Transmission Date: 20200122
  Serious: No
  Sender: FDA-Public Use
  Company Number: US-ORION CORPORATION ORION PHARMA-ENTC2019-0072

PATIENT
  Age: 59 Year
  Sex: Female

DRUGS (1)
  1. LEVODOPA-CARBIDOPA-ENTACAPONE (TRADE NAME UNKNOWN) [Suspect]
     Active Substance: CARBIDOPA\ENTACAPONE\LEVODOPA
     Indication: PRODUCT USED FOR UNKNOWN INDICATION
     Dosage: STRENGTH: 150/37.5/200 MG
     Route: 065

REACTIONS (4)
  - Therapeutic response shortened [Unknown]
  - Hypoaesthesia [Unknown]
  - Feeling abnormal [Unknown]
  - Dizziness [Unknown]
